FAERS Safety Report 18462382 (Version 2)
Quarter: 2020Q4

REPORT INFORMATION
  Report Type: Spontaneous
  Country: US (occurrence: US)
  Receive Date: 20201104
  Receipt Date: 20201110
  Transmission Date: 20210114
  Serious: Yes (Hospitalization)
  Sender: FDA-Public Use
  Company Number: US-PFIZER INC-2020421543

PATIENT
  Age: 20 Year
  Sex: Female
  Weight: 120 kg

DRUGS (2)
  1. PROPRANOLOL [Concomitant]
     Active Substance: PROPRANOLOL HYDROCHLORIDE
     Indication: POSTURAL ORTHOSTATIC TACHYCARDIA SYNDROME
     Dosage: 20 MG, DAILY
  2. DEPO-PROVERA [Suspect]
     Active Substance: MEDROXYPROGESTERONE ACETATE
     Indication: POLYCYSTIC OVARIES
     Dosage: UNK
     Route: 030
     Dates: start: 202006, end: 202006

REACTIONS (10)
  - Anaphylactic reaction [Recovered/Resolved with Sequelae]
  - Laryngeal oedema [Unknown]
  - Angioedema [Recovered/Resolved with Sequelae]
  - Rash [Unknown]
  - Urticaria [Unknown]
  - Condition aggravated [Unknown]
  - Pruritus [Unknown]
  - Off label use [Unknown]
  - Anxiety [Unknown]
  - Product use in unapproved indication [Unknown]

NARRATIVE: CASE EVENT DATE: 2020
